FAERS Safety Report 7467810-8 (Version None)
Quarter: 2011Q2

REPORT INFORMATION
  Report Type: 
  Country: None (occurrence: None)
  Receive Date: 20110505
  Receipt Date: 20110505
  Transmission Date: 20111010
  Serious: Yes (Other)
  Sender: FDA-Public Use
  Company Number: None

PATIENT
  Age: 41 Year
  Sex: Female
  Weight: 77.1115 kg

DRUGS (5)
  1. OXYCODONE HCL [Suspect]
     Indication: RASH
     Dosage: 30MG 4-6 HRS PO
     Route: 048
  2. OXYCODONE HCL [Suspect]
     Indication: VOMITING
     Dosage: 30MG 4-6 HRS PO
     Route: 048
  3. OXYCODONE HCL [Suspect]
     Indication: FAECES DISCOLOURED
     Dosage: 30MG 4-6 HRS PO
     Route: 048
  4. OXYCODONE HCL [Suspect]
     Indication: MALABSORPTION
     Dosage: 30MG 4-6 HRS PO
     Route: 048
  5. OXYCODONE HCL [Suspect]
     Indication: PAIN
     Dosage: 30MG 4-6 HRS PO
     Route: 048

REACTIONS (11)
  - HEADACHE [None]
  - FAECES DISCOLOURED [None]
  - RASH [None]
  - NAUSEA [None]
  - DRUG INEFFECTIVE [None]
  - MEDICATION RESIDUE [None]
  - REACTION TO AZO-DYES [None]
  - CHROMATURIA [None]
  - PRODUCT FORMULATION ISSUE [None]
  - VOMITING [None]
  - DYSGEUSIA [None]
